FAERS Safety Report 4550480-6 (Version None)
Quarter: 2004Q4

REPORT INFORMATION
  Report Type: 
  Country: None (occurrence: None)
  Receive Date: 20041227
  Receipt Date: 20041115
  Transmission Date: 20050328
  Serious: No
  Sender: FDA-Public Use
  Company Number: 04P-163-0280762-00

PATIENT
  Age: 54 Year
  Sex: Female

DRUGS (15)
  1. HUMIRA [Suspect]
     Indication: RHEUMATOID ARTHRITIS
     Dosage: 40 MG 1 IN 2 WK SUBCUTANEOUS
     Route: 058
     Dates: start: 20030512, end: 20040801
  2. HUMIRA [Suspect]
     Indication: RHEUMATOID ARTHRITIS
     Dosage: 40 MG 1 IN 2 WK SUBCUTANEOUS
     Route: 058
     Dates: start: 20041115
  3. LEXAPRO [Concomitant]
  4. CLONAZEPAM [Concomitant]
  5. ZOLPIDEM TARTRATE [Concomitant]
  6. POTASSIUM [Concomitant]
  7. CALCIUM GLUCONATE [Concomitant]
  8. FOLIC ACID [Concomitant]
  9. ALLEGRA-D [Concomitant]
  10. METHOTREXATE SODIUM [Concomitant]
  11. ALENDRONATE SODIUM [Concomitant]
  12. FENTANYL [Concomitant]
  13. LIDODERM [Concomitant]
  14. LEVOTHYROXINE SODIUM [Concomitant]
  15. FUROSEMIDE [Concomitant]

REACTIONS (5)
  - BOWEL SOUNDS ABNORMAL [None]
  - DIZZINESS [None]
  - FLATULENCE [None]
  - NAUSEA [None]
  - URINARY TRACT INFECTION [None]
